FAERS Safety Report 5637168-5 (Version None)
Quarter: 2008Q1

REPORT INFORMATION
  Report Type: 
  Country: None (occurrence: None)
  Receive Date: 20080225
  Receipt Date: 20071226
  Transmission Date: 20080703
  Serious: No
  Sender: FDA-Public Use
  Company Number: US-BRISTOL-MYERS SQUIBB COMPANY-14025183

PATIENT
  Age: 53 Year
  Sex: Female

DRUGS (4)
  1. METFORMIN HCL [Suspect]
  2. GLYBURIDE [Suspect]
  3. ZOLOFT [Suspect]
  4. CYMBALTA [Concomitant]

REACTIONS (3)
  - DIARRHOEA [None]
  - HYPERGLYCAEMIA [None]
  - TREMOR [None]
